FAERS Safety Report 6275712-8 (Version None)
Quarter: 2009Q3

REPORT INFORMATION
  Report Type: 
  Country: None (occurrence: None)
  Receive Date: 20090721
  Receipt Date: 20090713
  Transmission Date: 20100115
  Serious: Yes (Hospitalization)
  Sender: FDA-Public Use
  Company Number: PHHY2009IT28904

PATIENT
  Sex: Female

DRUGS (5)
  1. TASIGNA [Suspect]
     Indication: CHRONIC MYELOID LEUKAEMIA
     Dosage: 800 MG
     Route: 048
     Dates: start: 20080930, end: 20090601
  2. TASIGNA [Suspect]
     Dosage: 600 MG
     Route: 048
     Dates: start: 20090602, end: 20090623
  3. ATENOLOL [Concomitant]
     Dosage: 1 DF, UNK
     Route: 048
  4. CARDIOSPIRIN (ASA) [Concomitant]
     Dosage: 100 MG DAILY
     Route: 048
  5. HIZAAR [Concomitant]
     Dosage: 1 DF, UNK
     Route: 048

REACTIONS (1)
  - ANGINA PECTORIS [None]
